FAERS Safety Report 18622075 (Version 1)
Quarter: 2020Q4

REPORT INFORMATION
  Report Type: Spontaneous
  Country: JP (occurrence: JP)
  Receive Date: 20201216
  Receipt Date: 20201216
  Transmission Date: 20210114
  Serious: Yes (Death, Other)
  Sender: FDA-Public Use
  Company Number: JP-MACLEODS PHARMACEUTICALS US LTD-MAC2020029423

PATIENT

DRUGS (2)
  1. DESMETHYLSILDENAFIL [Suspect]
     Active Substance: DESMETHYLSILDENAFIL
     Indication: PRODUCT USED FOR UNKNOWN INDICATION
     Dosage: UNK
     Route: 065
  2. SILDENAFIL. [Suspect]
     Active Substance: SILDENAFIL
     Indication: PRODUCT USED FOR UNKNOWN INDICATION
     Dosage: UNK
     Route: 065

REACTIONS (5)
  - Prescription drug used without a prescription [Unknown]
  - Vomiting [Fatal]
  - Cerebral artery stenosis [Fatal]
  - Loss of consciousness [Fatal]
  - Asphyxia [Fatal]
